FAERS Safety Report 23798765 (Version 1)
Quarter: 2024Q2

REPORT INFORMATION
  Report Type: Spontaneous
  Country: US (occurrence: None)
  Receive Date: 20240427
  Receipt Date: 20240427
  Transmission Date: 20240715
  Serious: Yes (Hospitalization)
  Sender: FDA-Public Use
  Company Number: None

PATIENT
  Age: 82 Year
  Sex: Male

DRUGS (1)
  1. APIXABAN [Suspect]
     Active Substance: APIXABAN
     Dosage: FREQUENCY : TWICE A DAY;?
     Route: 048
     Dates: start: 20180712, end: 20230208

REACTIONS (4)
  - Subdural haematoma [None]
  - Seizure like phenomena [None]
  - Fall [None]
  - Therapy cessation [None]

NARRATIVE: CASE EVENT DATE: 20230208
